FAERS Safety Report 8423042-8 (Version None)
Quarter: 2012Q2

REPORT INFORMATION
  Report Type: 
  Country: None (occurrence: None)
  Receive Date: 20120608
  Receipt Date: 20120530
  Transmission Date: 20120825
  Serious: Yes (Other)
  Sender: FDA-Public Use
  Company Number: US-JNJFOC-20120600696

PATIENT
  Sex: Female

DRUGS (2)
  1. MESALAMINE [Concomitant]
     Route: 065
  2. REMICADE [Suspect]
     Indication: CROHN'S DISEASE
     Dosage: DOSE: 4 VIALS EVERY 6-8 WEEKS
     Route: 042
     Dates: start: 20120201, end: 20120101

REACTIONS (2)
  - ADVERSE EVENT [None]
  - OPEN WOUND [None]
